FAERS Safety Report 19884186 (Version 2)
Quarter: 2024Q3

REPORT INFORMATION
  Report Type: Spontaneous
  Country: US (occurrence: US)
  Receive Date: 20210927
  Receipt Date: 20240730
  Transmission Date: 20241016
  Serious: No
  Sender: SANOFI AVENTIS
  Company Number: US-SA-SAC20210922000271

PATIENT
  Age: 61 Year
  Sex: Female
  Weight: 74.84 kg

DRUGS (17)
  1. DUPIXENT [Suspect]
     Active Substance: DUPILUMAB
     Indication: Dermatitis atopic
     Dosage: 300 MG, QOW
     Route: 058
     Dates: start: 20200219
  2. MONTELUKAST [Concomitant]
     Active Substance: MONTELUKAST SODIUM
  3. AZITHROMYCIN [Concomitant]
     Active Substance: AZITHROMYCIN
  4. QSYMIA [Concomitant]
     Active Substance: PHENTERMINE HYDROCHLORIDE\TOPIRAMATE
  5. NAPROXEN [Concomitant]
     Active Substance: NAPROXEN
     Indication: Osteoarthritis
  6. CITALOPRAM [Concomitant]
     Active Substance: CITALOPRAM\CITALOPRAM HYDROBROMIDE
  7. ALBUTEROL [Concomitant]
     Active Substance: ALBUTEROL
  8. PRILOSEC [Concomitant]
     Active Substance: OMEPRAZOLE MAGNESIUM
  9. METHYLPREDNISOLONE [Concomitant]
     Active Substance: METHYLPREDNISOLONE
  10. HYDROCHLOROTHIAZIDE [Concomitant]
     Active Substance: HYDROCHLOROTHIAZIDE
  11. FLUOCINONIDE [Concomitant]
     Active Substance: FLUOCINONIDE
  12. MONTELUKAST SODIUM [Concomitant]
     Active Substance: MONTELUKAST SODIUM
  13. CITALOPRAM HYDROBROMIDE [Concomitant]
     Active Substance: CITALOPRAM HYDROBROMIDE
  14. GABAPENTIN [Concomitant]
     Active Substance: GABAPENTIN
  15. PRILOSEC OTC [Concomitant]
     Active Substance: OMEPRAZOLE MAGNESIUM
  16. VITAMIN B COMPLEX [Concomitant]
     Active Substance: CYANOCOBALAMIN\DEXPANTHENOL\NIACINAMIDE\PYRIDOXINE HYDROCHLORIDE\RIBOFLAVIN 5^-PHOSPHATE SODIUM\THIA
  17. VITAMIN D3 [Concomitant]
     Active Substance: CHOLECALCIFEROL

REACTIONS (6)
  - Discomfort [Unknown]
  - Sleep disorder [Unknown]
  - Dermatitis atopic [Unknown]
  - Rash [Unknown]
  - Dermatitis atopic [Unknown]
  - Drug ineffective [Not Recovered/Not Resolved]
